FAERS Safety Report 5870491-8 (Version None)
Quarter: 2008Q3

REPORT INFORMATION
  Report Type: 
  Country: None (occurrence: None)
  Receive Date: 20080904
  Receipt Date: 20080824
  Transmission Date: 20090109
  Serious: Yes (Other)
  Sender: FDA-Public Use
  Company Number: US-ROCHE-582593

PATIENT
  Sex: Female

DRUGS (2)
  1. CELLCEPT [Suspect]
     Indication: TRANSPLANT
     Route: 065
     Dates: start: 19971201
  2. IMURAN [Suspect]
     Indication: DRUG USE FOR UNKNOWN INDICATION
     Route: 065
     Dates: start: 20080301

REACTIONS (4)
  - DIARRHOEA [None]
  - DRUG INTOLERANCE [None]
  - SKIN CANCER [None]
  - VOLVULUS [None]
